FAERS Safety Report 13328070 (Version 1)
Quarter: 2017Q1

REPORT INFORMATION
  Report Type: Spontaneous
  Country: US (occurrence: US)
  Receive Date: 20170313
  Receipt Date: 20170313
  Transmission Date: 20170428
  Serious: No
  Sender: FDA-Public Use
  Company Number: US-JNJFOC-20161208438

PATIENT
  Sex: Female
  Weight: 56.7 kg

DRUGS (5)
  1. NEUTROGENA T/SAL SHAMPOO [Concomitant]
     Indication: PRURITUS
     Route: 065
     Dates: start: 2013
  2. WOMENS ROGAINE UNSCENTED [Suspect]
     Active Substance: MINOXIDIL
     Route: 061
  3. LEVOTHYROXINE. [Concomitant]
     Active Substance: LEVOTHYROXINE
     Indication: HYPOTHYROIDISM
     Route: 065
  4. WOMENS ROGAINE UNSCENTED [Suspect]
     Active Substance: MINOXIDIL
     Indication: ALOPECIA
     Dosage: 3 TO 4 CAPFULS
     Route: 061
     Dates: start: 201310
  5. LEVOTHYROXINE. [Concomitant]
     Active Substance: LEVOTHYROXINE
     Indication: HYPOTHYROIDISM
     Route: 065

REACTIONS (7)
  - Skin irritation [Not Recovered/Not Resolved]
  - Hair growth abnormal [Unknown]
  - Pruritus [Not Recovered/Not Resolved]
  - Dry skin [Unknown]
  - Hair texture abnormal [Unknown]
  - Overdose [Unknown]
  - Inappropriate schedule of drug administration [Unknown]
